FAERS Safety Report 5883062-4 (Version None)
Quarter: 2008Q3

REPORT INFORMATION
  Report Type: 
  Country: None (occurrence: None)
  Receive Date: 20080913
  Receipt Date: 20080827
  Transmission Date: 20090109
  Serious: No
  Sender: FDA-Public Use
  Company Number: US-ABBOTT-08P-163-0472875-00

PATIENT
  Sex: Female
  Weight: 148.46 kg

DRUGS (11)
  1. HUMIRA [Suspect]
     Indication: CROHN'S DISEASE
     Dosage: 160 MG, INITIALLY
     Route: 058
     Dates: start: 20080601, end: 20080601
  2. HUMIRA [Suspect]
     Route: 058
  3. HUMIRA [Suspect]
     Route: 058
  4. AZATHIOPRINE [Concomitant]
     Indication: CROHN'S DISEASE
     Dosage: 2 - 50MG TABLETS AT BED TIME
     Route: 048
     Dates: start: 20060101
  5. LISIN/HCTZ [Concomitant]
     Indication: BLOOD PRESSURE
     Dosage: 20/125 - 0.5 TABLET A DAY
     Route: 048
     Dates: start: 20040101
  6. LISIN/HCTZ [Concomitant]
     Indication: DIURETIC THERAPY
  7. METOPROLOL TARTRATE [Concomitant]
     Indication: PROPHYLAXIS
     Route: 048
     Dates: start: 20050101
  8. METOPROLOL TARTRATE [Concomitant]
     Indication: HYPERTENSION
  9. ISOSORBIDE MONONITRATE [Concomitant]
     Indication: VASODILATATION
     Route: 048
     Dates: start: 20050101
  10. HUMALOG [Concomitant]
     Indication: BLOOD INSULIN
     Route: 048
     Dates: start: 20070101
  11. ATORVASTATIN CALCIUM [Concomitant]
     Indication: BLOOD CHOLESTEROL INCREASED
     Route: 048
     Dates: start: 20050101

REACTIONS (2)
  - INJECTION SITE ERYTHEMA [None]
  - INJECTION SITE NODULE [None]
